FAERS Safety Report 7265858-X (Version None)
Quarter: 2011Q1

REPORT INFORMATION
  Report Type: 
  Country: None (occurrence: None)
  Receive Date: 20110131
  Receipt Date: 20110124
  Transmission Date: 20110831
  Serious: Yes (Congenital Anomaly)
  Sender: FDA-Public Use
  Company Number: A0909874A

PATIENT
  Sex: Male

DRUGS (3)
  1. PROTONIX [Concomitant]
  2. ZOLOFT [Concomitant]
  3. PAXIL [Suspect]
     Route: 064

REACTIONS (5)
  - CONGENITAL AORTIC STENOSIS [None]
  - MITRAL VALVE INCOMPETENCE [None]
  - ATRIAL SEPTAL DEFECT [None]
  - DRUG EXPOSURE DURING PREGNANCY [None]
  - BICUSPID AORTIC VALVE [None]
